FAERS Safety Report 10008701 (Version 1)
Quarter: 2014Q1

REPORT INFORMATION
  Report Type: Spontaneous
  Country: US (occurrence: US)
  Receive Date: 20140312
  Receipt Date: 20140312
  Transmission Date: 20141002
  Serious: No
  Sender: FDA-Public Use
  Company Number: US-INCYTE CORPORATION-2012IN000653

PATIENT
  Sex: Female

DRUGS (11)
  1. JAKAFI [Suspect]
     Indication: MYELOFIBROSIS
     Dosage: 10 MG, BID
     Route: 048
  2. ALLOPURINOL [Concomitant]
  3. BELLADONNA ALKALOIDS [Concomitant]
  4. COUMADIN [Concomitant]
  5. GABAPENTIN [Concomitant]
  6. MULTIVITAMIN [Concomitant]
  7. OXYCODONE [Concomitant]
  8. PROPRANOLOL [Concomitant]
  9. SPIRIVA [Concomitant]
  10. URSODIOL [Concomitant]
  11. VITAMIN D [Concomitant]

REACTIONS (2)
  - Night sweats [Unknown]
  - Burning sensation [Unknown]
